FAERS Safety Report 5422238-7 (Version None)
Quarter: 2007Q3

REPORT INFORMATION
  Report Type: 
  Country: None (occurrence: None)
  Receive Date: 20070822
  Receipt Date: 20070821
  Transmission Date: 20080115
  Serious: Yes (Hospitalization)
  Sender: FDA-Public Use
  Company Number: ES-BRISTOL-MYERS SQUIBB COMPANY-13755533

PATIENT
  Age: 89 Year
  Sex: Female

DRUGS (5)
  1. BLINDED: APIXABAN [Suspect]
     Indication: ACUTE CORONARY SYNDROME
     Route: 048
     Dates: start: 20070309, end: 20070323
  2. BLINDED: PLACEBO [Suspect]
     Indication: ACUTE CORONARY SYNDROME
     Route: 048
     Dates: start: 20070309, end: 20070323
  3. ADIRO [Concomitant]
     Dates: start: 20070304
  4. COROPRES [Concomitant]
     Dates: start: 20070313
  5. CARDYL [Concomitant]
     Dates: start: 20070313

REACTIONS (2)
  - CHEST PAIN [None]
  - COAGULOPATHY [None]
